FAERS Safety Report 20299877 (Version 1)
Quarter: 2022Q1

REPORT INFORMATION
  Report Type: Spontaneous
  Country: US (occurrence: None)
  Receive Date: 20220105
  Receipt Date: 20220105
  Transmission Date: 20220423
  Serious: Yes (Life-Threatening, Disabling, Congenital Anomaly)
  Sender: FDA-Public Use
  Company Number: None

PATIENT
  Age: 31 Year
  Sex: Female
  Weight: 56.25 kg

DRUGS (1)
  1. MIRENA [Suspect]
     Active Substance: LEVONORGESTREL
     Indication: Contraception
     Dates: start: 20210406, end: 20220104

REACTIONS (6)
  - Embedded device [None]
  - Pain [None]
  - Vaginal haemorrhage [None]
  - Muscle spasms [None]
  - Headache [None]
  - Uterine scar [None]

NARRATIVE: CASE EVENT DATE: 20220104
